FAERS Safety Report 10215728 (Version 1)
Quarter: 2014Q2

REPORT INFORMATION
  Report Type: Spontaneous
  Country: US (occurrence: None)
  Receive Date: 20140603
  Receipt Date: 20140603
  Transmission Date: 20141212
  Serious: Yes (Other)
  Sender: FDA-Public Use
  Company Number: None

PATIENT
  Age: 65 Year
  Sex: Male
  Weight: 95.8 kg

DRUGS (5)
  1. LENALIDOMIDE 10 MG, CELGENE [Suspect]
     Indication: MYELODYSPLASTIC SYNDROME
     Route: 048
     Dates: start: 20140515, end: 20140517
  2. ALLOPURINOL [Concomitant]
  3. LORATADINE [Concomitant]
  4. MULTIVITAMIN [Concomitant]
  5. ASPIRIN [Concomitant]

REACTIONS (3)
  - Ear pruritus [None]
  - Erythema [None]
  - Swelling face [None]
